FAERS Safety Report 5774977-6 (Version None)
Quarter: 2008Q2

REPORT INFORMATION
  Report Type: 
  Country: None (occurrence: None)
  Receive Date: 20080617
  Receipt Date: 20080609
  Transmission Date: 20081010
  Serious: Yes (Hospitalization, Other)
  Sender: FDA-Public Use
  Company Number: US-AMGEN-QUU285873

PATIENT
  Sex: Female

DRUGS (1)
  1. ENBREL [Suspect]
     Indication: RHEUMATOID ARTHRITIS
     Route: 058
     Dates: start: 20020425

REACTIONS (8)
  - ARTHRALGIA [None]
  - INJECTION SITE PAIN [None]
  - JOINT EFFUSION [None]
  - JOINT SWELLING [None]
  - KNEE ARTHROPLASTY [None]
  - LYMPHADENOPATHY [None]
  - RHEUMATOID ARTHRITIS [None]
  - THROMBOSIS [None]
